FAERS Safety Report 4773805-5 (Version None)
Quarter: 2005Q3

REPORT INFORMATION
  Report Type: 
  Country: None (occurrence: None)
  Receive Date: 20050920
  Receipt Date: 20050913
  Transmission Date: 20060218
  Serious: Yes (Hospitalization)
  Sender: FDA-Public Use
  Company Number: US-GLAXOSMITHKLINE-A0574343A

PATIENT
  Age: 15 Year
  Sex: Female

DRUGS (1)
  1. PAXIL [Suspect]
     Indication: ANXIETY
     Dosage: 80MG PER DAY
     Route: 048
     Dates: start: 19960801

REACTIONS (13)
  - AGITATION [None]
  - ANXIETY [None]
  - HOSTILITY [None]
  - INTENTIONAL MISUSE [None]
  - MOOD ALTERED [None]
  - PARANOIA [None]
  - SELF MUTILATION [None]
  - SELF-INJURIOUS IDEATION [None]
  - SOCIAL AVOIDANT BEHAVIOUR [None]
  - SOCIAL FEAR [None]
  - SOMNOLENCE [None]
  - SUICIDAL IDEATION [None]
  - SUICIDE ATTEMPT [None]
